FAERS Safety Report 9023709 (Version 2)
Quarter: 2013Q1

REPORT INFORMATION
  Report Type: Report from Study
  Country: US (occurrence: US)
  Receive Date: 20130121
  Receipt Date: 20130206
  Transmission Date: 20140127
  Serious: No
  Sender: FDA-Public Use
  Company Number: US-VERTEX PHARMACEUTICALS INC.-2013-000801

PATIENT
  Age: 43 None
  Sex: Male
  Weight: 116 kg

DRUGS (12)
  1. VX-950 (TELAPREVIR) [Suspect]
     Indication: HEPATITIS C
     Dosage: 750 MG, TID
     Route: 048
  2. RIBAPAK [Suspect]
     Indication: HEPATITIS C
     Dosage: 1000 ,QD
  3. PEGASYS [Suspect]
     Indication: HEPATITIS C
     Dosage: 180 ?G, UNK
  4. XANAX [Concomitant]
     Dosage: .25 MG, UNK
  5. PAXIL [Concomitant]
     Dosage: 10 MG, UNK
  6. LASIX [Concomitant]
     Dosage: 20 MG, UNK
  7. NADOLOL [Concomitant]
     Dosage: 20 MG, UNK
  8. ZOFRAN [Concomitant]
     Dosage: 24 MG, UNK
  9. PRILOSEC [Concomitant]
     Dosage: 10 MG, UNK
  10. SPIRONOLACTON [Concomitant]
     Dosage: 100 MG, UNK
  11. TESTOSTERONE [Concomitant]
     Dosage: 100 MG/ML, UNK
  12. LORTAB [Concomitant]
     Dosage: 10-500

REACTIONS (4)
  - Arthralgia [Unknown]
  - Pain in extremity [Unknown]
  - Irritability [Unknown]
  - Nausea [Unknown]
